FAERS Safety Report 8332664-4 (Version None)
Quarter: 2012Q2

REPORT INFORMATION
  Report Type: 
  Country: None (occurrence: None)
  Receive Date: 20120503
  Receipt Date: 20120418
  Transmission Date: 20120825
  Serious: Yes (Other)
  Sender: FDA-Public Use
  Company Number: CN-JNJFOC-20110808737

PATIENT
  Age: 14 Year
  Sex: Male

DRUGS (2)
  1. TOPAMAX [Suspect]
     Indication: EPILEPSY
     Dosage: UNIT STRENGTH WAS 25 MG
     Route: 048
     Dates: start: 20110218, end: 20110802
  2. CHINESE TRADITIONAL MEDICINE [Concomitant]
     Indication: EPILEPSY
     Route: 048

REACTIONS (1)
  - PRIAPISM [None]
